FAERS Safety Report 4429310-9 (Version None)
Quarter: 2004Q3

REPORT INFORMATION
  Report Type: 
  Country: None (occurrence: None)
  Receive Date: 20040819
  Receipt Date: 20040816
  Transmission Date: 20050211
  Serious: Yes (Hospitalization)
  Sender: FDA-Public Use
  Company Number: PHRM2004FR02598

PATIENT
  Age: 15 Year
  Sex: Female

DRUGS (2)
  1. TRILEPTAL [Suspect]
     Indication: EPILEPSY
     Dosage: 300 MG, QD
     Route: 048
     Dates: start: 20040515, end: 20040518
  2. LAMICTAL [Suspect]
     Indication: EPILEPSY
     Dosage: 200 MG, QD
     Route: 048
     Dates: start: 20040505, end: 20040512

REACTIONS (8)
  - ALANINE AMINOTRANSFERASE INCREASED [None]
  - ASPARTATE AMINOTRANSFERASE INCREASED [None]
  - BLOOD LACTATE DEHYDROGENASE INCREASED [None]
  - CYTOLYTIC HEPATITIS [None]
  - GAMMA-GLUTAMYLTRANSFERASE INCREASED [None]
  - OEDEMA MUCOSAL [None]
  - SKIN OEDEMA [None]
  - THROMBOCYTOPENIA [None]
